FAERS Safety Report 7493704-8 (Version None)
Quarter: 2011Q2

REPORT INFORMATION
  Report Type: 
  Country: None (occurrence: None)
  Receive Date: 20110520
  Receipt Date: 20110426
  Transmission Date: 20111010
  Serious: Yes (Hospitalization)
  Sender: FDA-Public Use
  Company Number: SK-PFIZER INC-2011089619

PATIENT
  Age: 67 Year
  Sex: Male

DRUGS (9)
  1. TICLOPIDINE [Concomitant]
  2. MOLSIDOMINE [Concomitant]
  3. LUCETAM [Concomitant]
  4. PENTOXIFYLLINE [Concomitant]
  5. TEBOKAN [Concomitant]
  6. PERINDOPRIL [Concomitant]
  7. BISOCARD [Concomitant]
  8. SUNITINIB MALATE [Suspect]
     Indication: RENAL CANCER
     Dosage: 37.5 MG, 1X/DAY
     Dates: start: 20100825
  9. CAVINTON [Concomitant]

REACTIONS (4)
  - SPEECH DISORDER [None]
  - ENCEPHALOPATHY [None]
  - HEMIPARESIS [None]
  - HYPERTENSION [None]
